FAERS Safety Report 11915739 (Version 1)
Quarter: 2016Q1

REPORT INFORMATION
  Report Type: Spontaneous
  Country: US (occurrence: None)
  Receive Date: 20160113
  Receipt Date: 20160113
  Transmission Date: 20160526
  Serious: Yes (Hospitalization)
  Sender: FDA-Public Use
  Company Number: None

PATIENT
  Age: 19 Year
  Sex: Male

DRUGS (3)
  1. TASIGNA [Suspect]
     Active Substance: NILOTINIB
     Indication: CHRONIC MYELOID LEUKAEMIA
     Route: 048
     Dates: start: 20130306
  2. HYDROXYUREA. [Concomitant]
     Active Substance: HYDROXYUREA
  3. ALLOPURINOL. [Concomitant]
     Active Substance: ALLOPURINOL

REACTIONS (3)
  - Headache [None]
  - Vomiting [None]
  - White blood cell count increased [None]

NARRATIVE: CASE EVENT DATE: 20160108
